FAERS Safety Report 5964952-0 (Version None)
Quarter: 2008Q4

REPORT INFORMATION
  Report Type: 
  Country: None (occurrence: None)
  Receive Date: 20081125
  Receipt Date: 20081112
  Transmission Date: 20090506
  Serious: Yes (Hospitalization, Other)
  Sender: FDA-Public Use
  Company Number: PHHY2008MX08435

PATIENT
  Age: 69 Year
  Sex: Female

DRUGS (4)
  1. DIOVAN [Suspect]
     Indication: HYPERTENSION
     Dosage: 160 MG, QD
     Route: 048
     Dates: start: 19960601
  2. METOPROLOL TARTRATE [Concomitant]
     Indication: HYPERTENSION
     Dosage: 1 DF, QD
     Dates: start: 20060501
  3. GLYBURIDE [Concomitant]
     Indication: DIABETES MELLITUS
  4. SPIRONOLACTONE [Concomitant]
     Indication: HYPERTENSION

REACTIONS (9)
  - APPENDICITIS [None]
  - CHEST PAIN [None]
  - ERUCTATION [None]
  - FALL [None]
  - HERNIA [None]
  - IMPAIRED HEALING [None]
  - POSTOPERATIVE WOUND INFECTION [None]
  - SURGERY [None]
  - VOMITING [None]
